FAERS Safety Report 24223673 (Version 1)
Quarter: 2024Q3

REPORT INFORMATION
  Report Type: Report from Study
  Country: US (occurrence: None)
  Receive Date: 20240819
  Receipt Date: 20240819
  Transmission Date: 20241016
  Serious: Yes (Other)
  Sender: ASTRAZENECA
  Company Number: 2022A117386

PATIENT
  Sex: Female
  Weight: 66.2 kg

DRUGS (1)
  1. FASENRA [Suspect]
     Active Substance: BENRALIZUMAB
     Indication: Asthma
     Route: 058
     Dates: start: 2020

REACTIONS (5)
  - Retinal haemorrhage [Unknown]
  - Fall [Unknown]
  - Spinal column injury [Unknown]
  - Middle insomnia [Unknown]
  - Asthma [Unknown]
